FAERS Safety Report 10950193 (Version 1)
Quarter: 2015Q1

REPORT INFORMATION
  Report Type: Spontaneous
  Country: US (occurrence: None)
  Receive Date: 20150323
  Receipt Date: 20150323
  Transmission Date: 20150721
  Serious: Yes (Disabling, Other)
  Sender: FDA-Public Use
  Company Number: None

PATIENT
  Age: 31 Year
  Sex: Female
  Weight: 70.31 kg

DRUGS (2)
  1. MIRENA [Suspect]
     Active Substance: LEVONORGESTREL
  2. CLARITIN-D 12 HOUR [Concomitant]
     Active Substance: LORATADINE\PSEUDOEPHEDRINE SULFATE

REACTIONS (16)
  - Urinary tract infection [None]
  - Amnesia [None]
  - Amenorrhoea [None]
  - Thyroid neoplasm [None]
  - Hypoaesthesia [None]
  - Syncope [None]
  - Fungal infection [None]
  - Deafness [None]
  - Confusional state [None]
  - Multiple allergies [None]
  - Inflammation [None]
  - Arthralgia [None]
  - Iron deficiency [None]
  - Lymphadenopathy [None]
  - Gastrointestinal disorder [None]
  - Breast pain [None]
